FAERS Safety Report 12630752 (Version 1)
Quarter: 2016Q3

REPORT INFORMATION
  Report Type: Report from Study
  Country: BR (occurrence: BR)
  Receive Date: 20160808
  Receipt Date: 20160808
  Transmission Date: 20161109
  Serious: Yes (Other)
  Sender: FDA-Public Use
  Company Number: BR-SA-2016SA140171

PATIENT
  Sex: Female

DRUGS (5)
  1. METFORMIN [Concomitant]
     Active Substance: METFORMIN HYDROCHLORIDE
  2. SELOZOK [Concomitant]
     Active Substance: METOPROLOL SUCCINATE
  3. LANTUS SOLOSTAR [Suspect]
     Active Substance: INSULIN GLARGINE
     Route: 065
     Dates: start: 2006
  4. SOLOSTAR [Concomitant]
     Active Substance: DEVICE
     Dates: start: 2006
  5. HUMALOG [Concomitant]
     Active Substance: INSULIN LISPRO

REACTIONS (6)
  - Hypoglycaemia [Not Recovered/Not Resolved]
  - Neuropathy peripheral [Not Recovered/Not Resolved]
  - Application site bruise [Unknown]
  - Product use issue [Unknown]
  - Hyperglycaemia [Unknown]
  - Syncope [Unknown]

NARRATIVE: CASE EVENT DATE: 20160729
